FAERS Safety Report 7921689 (Version 2)
Quarter: 2012Q4

REPORT INFORMATION
  Report Type: 
  Country: US (occurrence: US)
  Receive Date: 20110429
  Receipt Date: 20121018
  Transmission Date: 20130627
  Serious: No
  Sender: FDA-Public Use
  Company Number: US-ASTRAZENECA-2010SE48620

PATIENT
  Age: 65 Year
  Sex: Male

DRUGS (2)
  1. NEXIUM [Suspect]
     Route: 048
  2. SEROQUEL XR [Suspect]
     Route: 048

REACTIONS (7)
  - Anxiety [Unknown]
  - Nervous system disorder [Unknown]
  - Gastrooesophageal reflux disease [Unknown]
  - Nightmare [Unknown]
  - Hyperhidrosis [Unknown]
  - Insomnia [Unknown]
  - Abdominal discomfort [Unknown]
